FAERS Safety Report 11012794 (Version 2)
Quarter: 2015Q2

REPORT INFORMATION
  Report Type: Spontaneous
  Country: US (occurrence: US)
  Receive Date: 20150411
  Receipt Date: 20150525
  Transmission Date: 20150821
  Serious: No
  Sender: FDA-Public Use
  Company Number: US-JNJFOC-20131105822

PATIENT
  Sex: Male
  Weight: 106.6 kg

DRUGS (1)
  1. INFLIXIMAB [Suspect]
     Active Substance: INFLIXIMAB
     Indication: RHEUMATOID ARTHRITIS
     Route: 042

REACTIONS (3)
  - Abdominal discomfort [Recovered/Resolved]
  - Respiratory disorder [Recovered/Resolved]
  - Hypersensitivity [Recovered/Resolved]
